FAERS Safety Report 4355582-5 (Version None)
Quarter: 2004Q2

REPORT INFORMATION
  Report Type: 
  Country: None (occurrence: None)
  Receive Date: 20040510
  Receipt Date: 20040223
  Transmission Date: 20050107
  Serious: Yes (Hospitalization)
  Sender: FDA-Public Use
  Company Number: JP-GLAXOSMITHKLINE-B0324521A

PATIENT
  Age: 74 Year
  Sex: Male

DRUGS (9)
  1. ZOVIRAX [Suspect]
     Indication: HERPES ZOSTER
     Dosage: 800MG FOUR TIMES PER DAY
     Route: 048
     Dates: start: 20040214, end: 20040216
  2. VALTREX [Suspect]
     Indication: HERPES ZOSTER
     Dosage: 1000MG THREE TIMES PER DAY
     Route: 048
     Dates: start: 20040217, end: 20040217
  3. MAGNESIUM OXIDE [Concomitant]
     Route: 065
  4. LAXOBERON [Concomitant]
     Route: 048
  5. GASMOTIN [Concomitant]
     Route: 048
  6. GASCON [Concomitant]
     Route: 048
  7. TAGAMET [Concomitant]
     Route: 065
  8. BASEN [Concomitant]
     Route: 048
  9. ZANTAC [Concomitant]
     Indication: GASTRITIS
     Dosage: 300MG PER DAY
     Route: 048

REACTIONS (2)
  - DEPRESSED LEVEL OF CONSCIOUSNESS [None]
  - TREMOR [None]
